FAERS Safety Report 4604002-1 (Version None)
Quarter: 2005Q1

REPORT INFORMATION
  Report Type: 
  Country: None (occurrence: None)
  Receive Date: 20050308
  Receipt Date: 20050308
  Transmission Date: 20050727
  Serious: Yes (Hospitalization)
  Sender: FDA-Public Use
  Company Number: None

PATIENT
  Sex: Male
  Weight: 128 kg

DRUGS (2)
  1. GEFITINIB 250MG TABS, ASTRAZENECA [Suspect]
     Dosage: 500 MG, PO, QD
     Route: 048
     Dates: start: 20050223, end: 20050322
  2. RAPAMUNE [Suspect]
     Dosage: 10 MG PO QD
     Route: 048
     Dates: start: 20050223, end: 20050322

REACTIONS (1)
  - DEEP VEIN THROMBOSIS [None]
